FAERS Safety Report 12997602 (Version 1)
Quarter: 2016Q4

REPORT INFORMATION
  Report Type: Spontaneous
  Country: GB (occurrence: GB)
  Receive Date: 20161205
  Receipt Date: 20161205
  Transmission Date: 20170207
  Serious: Yes (Other)
  Sender: FDA-Public Use
  Company Number: GB-TEVA-715950ACC

PATIENT
  Age: 37 Year

DRUGS (4)
  1. CITALOPRAM [Concomitant]
     Active Substance: CITALOPRAM HYDROBROMIDE
  2. QUININE SULPHATE [Suspect]
     Active Substance: QUININE SULFATE
     Dosage: 200MG (400MG ONCE DAILY)
     Route: 048
  3. LYMECYCLINE [Concomitant]
     Active Substance: LYMECYCLINE
  4. QUETIAPINE. [Concomitant]
     Active Substance: QUETIAPINE
     Dosage: 400 MILLIGRAM DAILY;

REACTIONS (4)
  - Palpitations [Unknown]
  - Tinnitus [Unknown]
  - Dyspepsia [Unknown]
  - Product label on wrong product [Unknown]

NARRATIVE: CASE EVENT DATE: 20151003
